FAERS Safety Report 13851590 (Version 1)
Quarter: 2017Q3

REPORT INFORMATION
  Report Type: Spontaneous
  Country: US (occurrence: US)
  Receive Date: 20170810
  Receipt Date: 20170810
  Transmission Date: 20171127
  Serious: No
  Sender: FDA-Public Use
  Company Number: US-BIOGEN-2017BI00443735

PATIENT
  Sex: Female

DRUGS (1)
  1. TYSABRI [Suspect]
     Active Substance: NATALIZUMAB
     Indication: MULTIPLE SCLEROSIS
     Route: 065
     Dates: start: 20161031

REACTIONS (5)
  - Arthritis [Unknown]
  - Musculoskeletal stiffness [Unknown]
  - Rash [Unknown]
  - Progressive multiple sclerosis [Unknown]
  - Drug ineffective [Unknown]
